FAERS Safety Report 10934658 (Version 1)
Quarter: 2015Q1

REPORT INFORMATION
  Report Type: Spontaneous
  Country: FI (occurrence: FI)
  Receive Date: 20150320
  Receipt Date: 20150320
  Transmission Date: 20150721
  Serious: Yes (Hospitalization, Disabling, Other)
  Sender: FDA-Public Use
  Company Number: FI-JNJFOC-20150309640

PATIENT
  Sex: Male

DRUGS (4)
  1. XARELTO [Suspect]
     Active Substance: RIVAROXABAN
     Indication: ATRIAL FIBRILLATION
     Route: 048
     Dates: start: 201309
  2. XARELTO [Suspect]
     Active Substance: RIVAROXABAN
     Indication: CEREBROVASCULAR ACCIDENT PROPHYLAXIS
     Route: 048
     Dates: start: 201309
  3. PRIMASPAN [Concomitant]
     Route: 065
     Dates: end: 20140814
  4. PRIMASPAN [Concomitant]
     Route: 065

REACTIONS (14)
  - Extremity necrosis [Unknown]
  - Myocardial infarction [Unknown]
  - Amnesia [Unknown]
  - Peripheral artery thrombosis [Unknown]
  - Pain in extremity [Unknown]
  - Confusional state [Unknown]
  - Osteomyelitis [Not Recovered/Not Resolved]
  - Leg amputation [Unknown]
  - Toe amputation [Unknown]
  - Abscess limb [Unknown]
  - Wound infection [Unknown]
  - Decubitus ulcer [Unknown]
  - Wound necrosis [Unknown]
  - Visual impairment [Unknown]

NARRATIVE: CASE EVENT DATE: 2014
